FAERS Safety Report 25662204 (Version 3)
Quarter: 2025Q4

REPORT INFORMATION
  Report Type: Report from Study
  Country: US (occurrence: US)
  Receive Date: 20250810
  Receipt Date: 20251205
  Transmission Date: 20260118
  Serious: Yes (Other)
  Sender: DR REDDYS
  Company Number: US-DRL-USA-USA/2025/08/012003

PATIENT
  Age: 17 Year
  Sex: Female
  Weight: 73.48 kg

DRUGS (6)
  1. ZENATANE [Suspect]
     Active Substance: ISOTRETINOIN
     Indication: Acne
     Dosage: NDC: 55111-0113-81
     Route: 065
  2. ZENATANE [Suspect]
     Active Substance: ISOTRETINOIN
     Dosage: NDC: 55111-0113-81, 55111-0137-78
     Route: 065
     Dates: start: 20250122, end: 202505
  3. ZENATANE [Suspect]
     Active Substance: ISOTRETINOIN
     Route: 065
     Dates: start: 202502
  4. ZENATANE [Suspect]
     Active Substance: ISOTRETINOIN
     Route: 065
     Dates: start: 202501
  5. ZENATANE [Suspect]
     Active Substance: ISOTRETINOIN
     Route: 065
     Dates: start: 202503
  6. Yaz birth control [Concomitant]
     Indication: Oral contraception
     Route: 065
     Dates: start: 202412

REACTIONS (2)
  - Exposure during pregnancy [Unknown]
  - Treatment noncompliance [Unknown]

NARRATIVE: CASE EVENT DATE: 20250709
